FAERS Safety Report 8593400-X (Version None)
Quarter: 2012Q3

REPORT INFORMATION
  Report Type: 
  Country: None (occurrence: None)
  Receive Date: 20120814
  Receipt Date: 20120809
  Transmission Date: 20120928
  Serious: Yes (Hospitalization)
  Sender: FDA-Public Use
  Company Number: PHFR2012GB004424

PATIENT
  Sex: Female

DRUGS (2)
  1. FLUTICASONE PROPIONATE/SALMETEROL [Interacting]
     Dosage: 1 DF, BID
  2. ONBREZ [Suspect]
     Dosage: 300 UG, QD

REACTIONS (3)
  - ACUTE PULMONARY OEDEMA [None]
  - ATRIAL FIBRILLATION [None]
  - LABELLED DRUG-DRUG INTERACTION MEDICATION ERROR [None]
